FAERS Safety Report 14824243 (Version 1)
Quarter: 2018Q2

REPORT INFORMATION
  Report Type: Spontaneous
  Country: US (occurrence: US)
  Receive Date: 20180428
  Receipt Date: 20180428
  Transmission Date: 20180711
  Serious: No
  Sender: FDA-Public Use
  Company Number: US-JNJFOC-20180402102

PATIENT
  Sex: Female

DRUGS (3)
  1. RISPERDAL [Suspect]
     Active Substance: RISPERIDONE
     Indication: PRODUCT USED FOR UNKNOWN INDICATION
     Route: 065
     Dates: start: 20180128, end: 20180312
  2. CLONIDINE. [Concomitant]
     Active Substance: CLONIDINE
     Indication: MOOD SWINGS
     Dosage: HALF TABLET IN THE MORNING AND IN THE AFTERNOON AT SCHOOL AND A WHOLE TABLET AT BEDTIME
     Route: 065
  3. METHYLPHENIDATE. [Concomitant]
     Active Substance: METHYLPHENIDATE
     Indication: ATTENTION DEFICIT/HYPERACTIVITY DISORDER
     Dosage: 1 TEASPOON IN MORNING, 1 TEASPOON WHILE AT SCHOOL AND 1 TEASPOON IN EVENING, IF NEEDED
     Route: 065

REACTIONS (3)
  - Ill-defined disorder [Unknown]
  - Aggression [Unknown]
  - Scratch [Unknown]

NARRATIVE: CASE EVENT DATE: 2018
